FAERS Safety Report 5556905-1 (Version None)
Quarter: 2007Q4

REPORT INFORMATION
  Report Type: 
  Country: None (occurrence: None)
  Receive Date: 20071214
  Receipt Date: 20071206
  Transmission Date: 20080405
  Serious: Yes (Other)
  Sender: FDA-Public Use
  Company Number: PHBS2007BR20593

PATIENT
  Age: 20 Year
  Sex: Female
  Weight: 45 kg

DRUGS (1)
  1. VOLTAREN [Suspect]
     Indication: SUTURE RELATED COMPLICATION
     Route: 054
     Dates: start: 20071206, end: 20071206

REACTIONS (1)
  - ANAL HAEMORRHAGE [None]
